FAERS Safety Report 7519158-0 (Version None)
Quarter: 2011Q2

REPORT INFORMATION
  Report Type: 
  Country: None (occurrence: None)
  Receive Date: 20110602
  Receipt Date: 20110526
  Transmission Date: 20111010
  Serious: Yes (Hospitalization)
  Sender: FDA-Public Use
  Company Number: CH-ROCHE-779829

PATIENT
  Age: 12 Year
  Sex: Male
  Weight: 36 kg

DRUGS (7)
  1. TEGRETOL [Concomitant]
     Route: 048
  2. ACETAMINOPHEN [Concomitant]
     Route: 048
     Dates: start: 20110215, end: 20110220
  3. IBRUPROFEN [Concomitant]
     Route: 048
     Dates: start: 20110215, end: 20110216
  4. MEROPENEM [Concomitant]
  5. TORADOL [Suspect]
     Route: 065
  6. VANCOMYCIN [Concomitant]
     Route: 042
     Dates: start: 20110201, end: 20110217
  7. URBANYL [Concomitant]
     Route: 048

REACTIONS (2)
  - NEUTROPENIA [None]
  - AGRANULOCYTOSIS [None]
